FAERS Safety Report 6734760-1 (Version None)
Quarter: 2010Q2

REPORT INFORMATION
  Report Type: 
  Country: None (occurrence: None)
  Receive Date: 20100521
  Receipt Date: 20100517
  Transmission Date: 20101027
  Serious: Yes (Other)
  Sender: FDA-Public Use
  Company Number: US-ASTRAZENECA-2007UW01787

PATIENT
  Age: 35 Year
  Sex: Male
  Weight: 119.7 kg

DRUGS (30)
  1. SEROQUEL [Suspect]
     Indication: DEPRESSION
     Route: 048
     Dates: start: 19990601, end: 20060801
  2. SEROQUEL [Suspect]
     Route: 048
     Dates: start: 19990801, end: 20060701
  3. SEROQUEL [Suspect]
     Route: 048
     Dates: start: 19990925
  4. SEROQUEL [Suspect]
     Dosage: 75 MG TO 200 MG
     Route: 048
     Dates: start: 20000621
  5. ABILIFY [Concomitant]
     Indication: DEPRESSION
     Dates: start: 20020101
  6. GEODON [Concomitant]
     Indication: DEPRESSION
     Dates: start: 20020101
  7. PROZAC [Concomitant]
     Indication: DEPRESSION
     Dates: start: 20040101
  8. CYMBALTA [Concomitant]
     Indication: DEPRESSION
     Dates: start: 20070101
  9. TRIAMTERENE AND HYDROCHLOROTHIAZIDE [Concomitant]
     Indication: HYPERTENSION
     Dosage: STRENGTH 75/50
     Dates: start: 19990804
  10. LOTREL [Concomitant]
     Dosage: 5 / 10 1 QD
     Dates: start: 20000621
  11. DOCUSATE SODIUM [Concomitant]
     Dates: start: 19990804
  12. BAYCOL [Concomitant]
     Indication: LIPIDS
     Dates: start: 20000621
  13. ATENOLOL [Concomitant]
     Dates: start: 20000707
  14. ATENOLOL [Concomitant]
     Route: 048
     Dates: start: 20010419, end: 20020314
  15. ZYPREXA [Concomitant]
     Indication: SCHIZOAFFECTIVE DISORDER
     Dates: start: 19990612, end: 19990927
  16. SYNTHROID [Concomitant]
     Route: 048
     Dates: start: 20000707
  17. DILTIAZEM HCL [Concomitant]
     Route: 048
     Dates: start: 20000707
  18. AMBIEN [Concomitant]
     Dates: start: 20000621
  19. AMBIEN [Concomitant]
     Dates: start: 20000621
  20. NORVASC [Concomitant]
     Dates: start: 19990902
  21. METFORMIN HCL [Concomitant]
     Route: 048
     Dates: start: 20061127
  22. ZOLOFT [Concomitant]
     Dates: start: 20050418
  23. ALLOPURINOL [Concomitant]
     Dates: start: 20010419
  24. LEVOXYL/ SYNTHROID [Concomitant]
     Route: 048
     Dates: start: 20010419
  25. HYDROCHLOROTHIAZIDE [Concomitant]
     Dates: start: 20020314
  26. DEPAKOTE [Concomitant]
     Dates: start: 19950823
  27. RISPERIDONE [Concomitant]
     Dates: start: 19950823
  28. PAXIL [Concomitant]
     Dates: start: 19950823
  29. VOLTAREN [Concomitant]
     Route: 048
     Dates: start: 20020314
  30. COGENTIN [Concomitant]
     Dosage: 2 MG 1 1/2 BID
     Dates: start: 19950823

REACTIONS (16)
  - ABDOMINAL PAIN UPPER [None]
  - ARTHRALGIA [None]
  - BLOOD CHOLESTEROL INCREASED [None]
  - BLOOD TRIGLYCERIDES INCREASED [None]
  - CHEST PAIN [None]
  - DIABETES MELLITUS INADEQUATE CONTROL [None]
  - DIABETIC KETOACIDOSIS [None]
  - DIABETIC NEUROPATHY [None]
  - GOUT [None]
  - HYPERGLYCAEMIA [None]
  - HYPERLIPIDAEMIA [None]
  - MYALGIA [None]
  - OBESITY [None]
  - PAIN IN EXTREMITY [None]
  - RECTAL HAEMORRHAGE [None]
  - TYPE 2 DIABETES MELLITUS [None]
